FAERS Safety Report 12646863 (Version 1)
Quarter: 2016Q3

REPORT INFORMATION
  Report Type: Spontaneous
  Country: US (occurrence: US)
  Receive Date: 20160812
  Receipt Date: 20160812
  Transmission Date: 20161109
  Serious: No
  Sender: FDA-Public Use
  Company Number: US-PAR PHARMACEUTICAL, INC-2015SCPR014484

PATIENT

DRUGS (1)
  1. BREVITAL SODIUM [Suspect]
     Active Substance: METHOHEXITAL SODIUM
     Indication: ANAESTHESIA
     Dosage: UNK UNK, UNKNOWN
     Route: 065

REACTIONS (2)
  - Drug effect decreased [Recovered/Resolved]
  - Product quality issue [Unknown]
